FAERS Safety Report 6576381-X (Version None)
Quarter: 2010Q1

REPORT INFORMATION
  Report Type: 
  Country: None (occurrence: None)
  Receive Date: 20100210
  Receipt Date: 20100105
  Transmission Date: 20100710
  Serious: Yes (Death)
  Sender: FDA-Public Use
  Company Number: US-TYCO HEALTHCARE/MALLINCKRODT-T201000524

PATIENT
  Age: 24 Year
  Sex: Male

DRUGS (3)
  1. OXYCODONE HCL [Suspect]
     Dosage: UNK
  2. METHAMPHETAMINE [Suspect]
     Dosage: UNK
  3. ETHANOL [Suspect]
     Dosage: UNK

REACTIONS (1)
  - COMPLETED SUICIDE [None]
